FAERS Safety Report 23033805 (Version 1)
Quarter: 2023Q4

REPORT INFORMATION
  Report Type: Report from Study
  Country: IN (occurrence: None)
  Receive Date: 20231005
  Receipt Date: 20231005
  Transmission Date: 20240109
  Serious: Yes (Hospitalization)
  Sender: FDA-Public Use
  Company Number: 2023A223543

PATIENT
  Sex: Female
  Weight: 53 kg

DRUGS (1)
  1. TAGRISSO [Suspect]
     Active Substance: OSIMERTINIB
     Indication: Metastasis
     Route: 048

REACTIONS (3)
  - Uterine pain [Unknown]
  - Pyrexia [Unknown]
  - Headache [Unknown]
